FAERS Safety Report 23760793 (Version 6)
Quarter: 2025Q1

REPORT INFORMATION
  Report Type: Report from Study
  Country: US (occurrence: US)
  Receive Date: 20240419
  Receipt Date: 20250110
  Transmission Date: 20250409
  Serious: Yes (Hospitalization, Other)
  Sender: NOVARTIS
  Company Number: US-002147023-NVSC2024US079091

PATIENT
  Sex: Male

DRUGS (2)
  1. KESIMPTA [Suspect]
     Active Substance: OFATUMUMAB
     Indication: Multiple sclerosis
     Dosage: 20 MG, QD
     Route: 058
  2. KESIMPTA [Suspect]
     Active Substance: OFATUMUMAB
     Dosage: 20 MG, QMO
     Route: 058

REACTIONS (11)
  - Illness [Unknown]
  - Dehydration [Unknown]
  - Feeling cold [Unknown]
  - Renal impairment [Unknown]
  - Hallucination [Unknown]
  - Pyrexia [Unknown]
  - Multiple sclerosis relapse [Unknown]
  - Hypoaesthesia [Unknown]
  - Visual impairment [Not Recovered/Not Resolved]
  - Fatigue [Unknown]
  - Diplopia [Not Recovered/Not Resolved]
